FAERS Safety Report 20975105 (Version 5)
Quarter: 2022Q4

REPORT INFORMATION
  Report Type: Report from Study
  Country: US (occurrence: US)
  Receive Date: 20220617
  Receipt Date: 20221031
  Transmission Date: 20230112
  Serious: No
  Sender: FDA-Public Use
  Company Number: US-NOVARTISTESTPH-NVSC2022US138987

PATIENT
  Age: 56 Year
  Sex: Female
  Weight: 51.701 kg

DRUGS (5)
  1. TREPROSTINIL [Suspect]
     Active Substance: TREPROSTINIL
     Indication: Pulmonary arterial hypertension
     Dosage: 18.5 CONT, (NG/KG/MIN)
     Route: 042
     Dates: start: 20220606
  2. TREPROSTINIL [Suspect]
     Active Substance: TREPROSTINIL
     Dosage: 18.5 CONT, (NG/KG/MIN)
     Route: 042
     Dates: start: 20220606
  3. TREPROSTINIL [Suspect]
     Active Substance: TREPROSTINIL
     Dosage: 17 CONT, (NG/KG/MIN)
     Route: 042
     Dates: start: 20220611
  4. AMBRISENTAN [Suspect]
     Active Substance: AMBRISENTAN
     Indication: Product used for unknown indication
     Dosage: UNK
     Route: 065
  5. TADALAFIL [Concomitant]
     Active Substance: TADALAFIL
     Indication: Product used for unknown indication
     Dosage: UNK
     Route: 065

REACTIONS (4)
  - Sleep disorder [Unknown]
  - Adverse drug reaction [Unknown]
  - Dyspnoea [Unknown]
  - Pruritus [Unknown]

NARRATIVE: CASE EVENT DATE: 20220612
